FAERS Safety Report 8459552-7 (Version None)
Quarter: 2012Q2

REPORT INFORMATION
  Report Type: 
  Country: None (occurrence: None)
  Receive Date: 20120622
  Receipt Date: 20120616
  Transmission Date: 20120825
  Serious: Yes (Hospitalization)
  Sender: FDA-Public Use
  Company Number: US-PFIZER INC-2012131647

PATIENT
  Sex: Female
  Weight: 106.7 kg

DRUGS (10)
  1. PROCHLORPERAZINE [Concomitant]
     Indication: NAUSEA
     Dosage: UNK
     Route: 048
     Dates: start: 20120504
  2. NERATINIB [Suspect]
     Indication: BREAST CANCER METASTATIC
     Dosage: 240 MG, 1X/DAY
     Route: 048
     Dates: start: 20120504, end: 20120527
  3. IMODIUM [Concomitant]
     Indication: NAUSEA
     Dosage: UNK
     Route: 048
     Dates: start: 20120504
  4. DURAGESIC-100 [Concomitant]
     Indication: PAIN
     Dosage: UNK
     Route: 062
     Dates: start: 20120504
  5. TEMSIROLIMUS [Suspect]
     Indication: BREAST CANCER METASTATIC
     Dosage: 8 MG, WEEKLY
     Route: 042
     Dates: start: 20120504, end: 20120525
  6. PROMETHAZINE W/ CODEINE [Concomitant]
     Indication: COUGH
     Dosage: UNK
     Route: 048
     Dates: start: 20120504
  7. COZAAR [Concomitant]
     Indication: HYPERTENSION
     Dosage: UNK
     Route: 048
     Dates: start: 20120504
  8. INDOCIN [Concomitant]
     Indication: OEDEMA
     Dosage: UNK
     Route: 048
     Dates: start: 20120504
  9. OXYCODONE [Concomitant]
     Indication: PAIN
     Dosage: UNK
     Route: 048
     Dates: start: 20120504
  10. VITAMIN D [Concomitant]
     Indication: SUPPLEMENTATION THERAPY
     Dosage: UNK
     Route: 048
     Dates: start: 20120504

REACTIONS (6)
  - VOMITING [None]
  - ALANINE AMINOTRANSFERASE INCREASED [None]
  - DIARRHOEA [None]
  - ABDOMINAL PAIN [None]
  - NAUSEA [None]
  - ASPARTATE AMINOTRANSFERASE INCREASED [None]
